FAERS Safety Report 24639197 (Version 3)
Quarter: 2025Q1

REPORT INFORMATION
  Report Type: Spontaneous
  Country: US (occurrence: US)
  Receive Date: 20241119
  Receipt Date: 20250301
  Transmission Date: 20250408
  Serious: No
  Sender: SANOFI AVENTIS
  Company Number: US-SA-2024SA333485

PATIENT
  Age: 76 Year
  Sex: Male

DRUGS (20)
  1. REZUROCK [Suspect]
     Active Substance: BELUMOSUDIL
     Indication: Graft versus host disease
     Dosage: 200 MG, QD
     Route: 048
     Dates: start: 20241108
  2. REZUROCK [Suspect]
     Active Substance: BELUMOSUDIL
     Dosage: 200 MG, QOD
     Route: 048
  3. ONDANSETRON [Concomitant]
     Active Substance: ONDANSETRON
  4. FORMOTEROL FUMARATE [Concomitant]
     Active Substance: FORMOTEROL FUMARATE
  5. LANTUS [Concomitant]
     Active Substance: INSULIN GLARGINE
  6. ACETAMINOPHEN\HYDROCODONE [Concomitant]
     Active Substance: ACETAMINOPHEN\HYDROCODONE
  7. YUPELRI [Concomitant]
     Active Substance: REVEFENACIN
  8. MONTELUKAST [Concomitant]
     Active Substance: MONTELUKAST
  9. LORAZEPAM [Concomitant]
     Active Substance: LORAZEPAM
  10. MIDODRINE [Concomitant]
     Active Substance: MIDODRINE
  11. TACROLIMUS [Concomitant]
     Active Substance: TACROLIMUS
  12. FLUTICASONE [Concomitant]
     Active Substance: FLUTICASONE
  13. ELIQUIS [Concomitant]
     Active Substance: APIXABAN
  14. ERYTHROMYCIN [Concomitant]
     Active Substance: ERYTHROMYCIN
  15. BENZONATATE [Concomitant]
     Active Substance: BENZONATATE
  16. ALBUTEROL SULFATE [Concomitant]
     Active Substance: ALBUTEROL SULFATE
  17. CYMBALTA [Concomitant]
     Active Substance: DULOXETINE HYDROCHLORIDE
  18. BUDESONIDE [Concomitant]
     Active Substance: BUDESONIDE
  19. ACYCLOVIR [Concomitant]
     Active Substance: ACYCLOVIR
  20. TAMSULOSIN [Concomitant]
     Active Substance: TAMSULOSIN

REACTIONS (5)
  - Sinusitis [Recovered/Resolved]
  - Cough [Recovered/Resolved]
  - Diarrhoea [Recovering/Resolving]
  - Product prescribing issue [Unknown]
  - Inappropriate schedule of product administration [Unknown]

NARRATIVE: CASE EVENT DATE: 20250101
